FAERS Safety Report 10377022 (Version 1)
Quarter: 2014Q3

REPORT INFORMATION
  Report Type: Spontaneous
  Country: AR (occurrence: AR)
  Receive Date: 20140812
  Receipt Date: 20140812
  Transmission Date: 20150326
  Serious: Yes (Other)
  Sender: FDA-Public Use
  Company Number: AR-ROCHE-1446218

PATIENT

DRUGS (1)
  1. XENICAL [Suspect]
     Active Substance: ORLISTAT
     Indication: WEIGHT DECREASED
     Route: 065

REACTIONS (5)
  - Proctalgia [Unknown]
  - Rectal discharge [Unknown]
  - Faecal incontinence [Unknown]
  - Liver injury [Unknown]
  - Abdominal pain upper [Unknown]
